FAERS Safety Report 5679033-3 (Version None)
Quarter: 2008Q1

REPORT INFORMATION
  Report Type: 
  Country: None (occurrence: None)
  Receive Date: 20080321
  Receipt Date: 20080317
  Transmission Date: 20080703
  Serious: Yes (Hospitalization)
  Sender: FDA-Public Use
  Company Number: FABR-1000120

PATIENT
  Age: 62 Year
  Sex: Female

DRUGS (2)
  1. FABRAZYME [Suspect]
     Indication: FABRY'S DISEASE
     Dosage: 1 MG/KG, Q2W, INTRAVENOUS
     Route: 042
     Dates: start: 20030307
  2. DIGOXIN [Suspect]
     Indication: DRUG USE FOR UNKNOWN INDICATION

REACTIONS (5)
  - NAUSEA [None]
  - RENAL IMPAIRMENT [None]
  - TRANSIENT ISCHAEMIC ATTACK [None]
  - VOMITING [None]
  - WEIGHT DECREASED [None]
